FAERS Safety Report 5005072-1 (Version None)
Quarter: 2006Q2

REPORT INFORMATION
  Report Type: 
  Country: None (occurrence: None)
  Receive Date: 20060512
  Receipt Date: 20060509
  Transmission Date: 20061013
  Serious: Yes (Death, Hospitalization)
  Sender: FDA-Public Use
  Company Number: HQWYE911308DEC05

PATIENT
  Age: 63 Year
  Sex: Female

DRUGS (5)
  1. TEMSIROLIMUS (TEMSIROLIMUS, UNSPEC) [Suspect]
     Indication: BREAST CANCER
     Dosage: 30 MG DAYS 1-5 14 DAY CYCLE) ORAL
     Route: 048
     Dates: start: 20051022, end: 20051123
  2. LETROZOLE/TEMSIROLIMUS (LETROZOLE/TEMSIROLIMUS, TABLET) [Suspect]
     Indication: BREAST CANCER
     Dosage: ORAL
     Route: 048
     Dates: start: 20051022, end: 20051125
  3. MORPHINE SULFATE [Concomitant]
  4. MORPHINE [Concomitant]
  5. DICLOFENAC (DICLOFENAC) [Concomitant]

REACTIONS (6)
  - ANAEMIA [None]
  - BUNDLE BRANCH BLOCK [None]
  - DEHYDRATION [None]
  - GENERAL PHYSICAL HEALTH DETERIORATION [None]
  - LETHARGY [None]
  - MYOCARDIAL INFARCTION [None]
